FAERS Safety Report 8093206-4 (Version None)
Quarter: 2012Q1

REPORT INFORMATION
  Report Type: 
  Country: None (occurrence: None)
  Receive Date: 20120128
  Receipt Date: 20110907
  Transmission Date: 20120608
  Serious: No
  Sender: FDA-Public Use
  Company Number: US-ABBOTT-11P-163-0702199-00

PATIENT
  Sex: Male
  Weight: 95.34 kg

DRUGS (6)
  1. HUMIRA [Suspect]
     Route: 058
     Dates: start: 20090101, end: 20100501
  2. HUMIRA [Suspect]
     Indication: PSORIASIS
     Dosage: PENS
     Route: 058
     Dates: start: 20110301
  3. LIPITOR [Concomitant]
     Indication: BLOOD CHOLESTEROL INCREASED
  4. LOTENSIN [Concomitant]
     Indication: HYPERTENSION
     Dosage: GENERIC
  5. ASPIRIN [Concomitant]
     Indication: PROPHYLAXIS
  6. HUMIRA [Suspect]
     Indication: PSORIASIS
     Dosage: PFS
     Route: 058
     Dates: start: 20090101, end: 20100501

REACTIONS (3)
  - UPPER RESPIRATORY TRACT INFECTION [None]
  - PSORIASIS [None]
  - PARANASAL SINUS HYPERSECRETION [None]
